FAERS Safety Report 7966854-7 (Version None)
Quarter: 2011Q4

REPORT INFORMATION
  Report Type: 
  Country: None (occurrence: None)
  Receive Date: 20111209
  Receipt Date: 20111201
  Transmission Date: 20120403
  Serious: Yes (Disabling, Other)
  Sender: FDA-Public Use
  Company Number: US-BRISTOL-MYERS SQUIBB COMPANY-16188468

PATIENT
  Age: 49 Year
  Sex: Female
  Weight: 93 kg

DRUGS (27)
  1. NEXIUM [Concomitant]
     Route: 048
     Dates: start: 20081202
  2. VICODIN [Concomitant]
     Dosage: 1 DF= 5-500 MG TABS (4 PER DAY).
  3. ESTRADIOL [Concomitant]
     Route: 048
     Dates: start: 20110112
  4. ATENOLOL [Concomitant]
     Dosage: STRENGTH:50MG
     Route: 048
  5. LEXAPRO [Concomitant]
     Route: 048
  6. SUCRALFATE [Concomitant]
     Route: 048
     Dates: start: 20080827
  7. LASIX [Concomitant]
  8. XALATAN [Concomitant]
     Dosage: EYE DROPS
  9. BENADRYL [Concomitant]
     Route: 048
  10. LYRICA [Concomitant]
     Dosage: 1DF=150 UNITS NOS
  11. VITAMIN E [Concomitant]
     Dosage: STRENGTH:1000IU
     Route: 048
  12. SPRYCEL [Suspect]
     Indication: CHRONIC MYELOID LEUKAEMIA
     Route: 048
     Dates: start: 20070701
  13. PREDNISONE TAB [Concomitant]
  14. LEVOTHYROXINE SODIUM [Concomitant]
     Dosage: 150MCG, 188MG
     Route: 048
  15. ALLOPURINOL [Concomitant]
  16. CALCIUM [Concomitant]
  17. SALSALATE [Concomitant]
  18. ACYCLOVIR [Concomitant]
     Route: 048
     Dates: start: 20110427
  19. KETOROLAC TROMETHAMINE [Concomitant]
     Dosage: 1DF=0.45%
     Route: 047
  20. FISH OIL [Concomitant]
     Dosage: STRENGTH:120-180-1000MG
     Route: 048
     Dates: start: 20091021
  21. HYDROCODONE [Concomitant]
  22. ACIDOPHILUS [Concomitant]
     Route: 048
  23. AMBIEN [Concomitant]
     Dosage: EVERY DAY BEFORE SLEEP.
     Route: 048
  24. SULFASALAZINE [Concomitant]
     Dosage: 1DF=500 UNITS NOS
  25. FLUCONAZOLE [Concomitant]
     Route: 048
  26. ASCORBIC ACID [Concomitant]
  27. MULTI-VITAMIN [Concomitant]
     Route: 048

REACTIONS (16)
  - PAIN [None]
  - FLUID RETENTION [None]
  - STOMATITIS [None]
  - GENITAL PAIN [None]
  - DEAFNESS [None]
  - DYSPEPSIA [None]
  - SKIN DISORDER [None]
  - ERYTHEMA NODOSUM [None]
  - HEADACHE [None]
  - FATIGUE [None]
  - VASOMOTOR RHINITIS [None]
  - FUNGAL INFECTION [None]
  - UVEITIS [None]
  - TENDON DISORDER [None]
  - INTRAOCULAR PRESSURE INCREASED [None]
  - ARTHRALGIA [None]
